FAERS Safety Report 16671238 (Version 1)
Quarter: 2019Q3

REPORT INFORMATION
  Report Type: Report from Study
  Country: None (occurrence: GR)
  Receive Date: 20190805
  Receipt Date: 20190805
  Transmission Date: 20191004
  Serious: Yes (Other)
  Sender: FDA-Public Use
  Company Number: GR-ABBVIE-19K-066-2872521-00

PATIENT
  Age: 70 Year
  Sex: Female
  Weight: 48 kg

DRUGS (10)
  1. RANEXA [Concomitant]
     Active Substance: RANOLAZINE
     Indication: PRINZMETAL ANGINA
     Route: 048
  2. PLAQUENIL [Concomitant]
     Active Substance: HYDROXYCHLOROQUINE SULFATE
     Indication: SYSTEMIC LUPUS ERYTHEMATOSUS
     Route: 048
  3. DUODOPA [Suspect]
     Active Substance: CARBIDOPA\LEVODOPA
     Indication: PARKINSON^S DISEASE
     Dosage: MORNING DOSE: 7.0ML/H;  CONTINUOUS DOSE: 1.8ML/H; EXTRA DOSE: 1.0ML
     Route: 050
     Dates: start: 20190507
  4. MONOSORDIL [Concomitant]
     Indication: PRODUCT USED FOR UNKNOWN INDICATION
     Route: 048
  5. LOBIVON [Concomitant]
     Active Substance: NEBIVOLOL HYDROCHLORIDE
     Indication: CORONARY ARTERY DISEASE
     Route: 048
  6. PEZALE [Concomitant]
     Indication: PRODUCT USED FOR UNKNOWN INDICATION
     Route: 048
  7. LOSEC [Concomitant]
     Active Substance: OMEPRAZOLE
     Indication: PRODUCT USED FOR UNKNOWN INDICATION
     Route: 048
  8. SINTROM [Concomitant]
     Active Substance: ACENOCOUMAROL
     Indication: THROMBOSIS
     Route: 048
  9. SINTROM [Concomitant]
     Active Substance: ACENOCOUMAROL
     Indication: DEEP VEIN THROMBOSIS
  10. PREZOLON [Concomitant]
     Active Substance: PREDNISOLONE
     Indication: PRODUCT USED FOR UNKNOWN INDICATION
     Route: 048

REACTIONS (4)
  - Spinal fracture [Recovering/Resolving]
  - Musculoskeletal stiffness [Unknown]
  - Immobile [Recovered/Resolved]
  - Fall [Recovered/Resolved]

NARRATIVE: CASE EVENT DATE: 201906
